FAERS Safety Report 18911877 (Version 2)
Quarter: 2021Q1

REPORT INFORMATION
  Report Type: Report from Study
  Country: None (occurrence: US)
  Receive Date: 20210219
  Receipt Date: 20210313
  Transmission Date: 20210420
  Serious: Yes (Other)
  Sender: FDA-Public Use
  Company Number: US-ABBVIE-21K-163-3776822-00

PATIENT
  Age: 69 Year
  Sex: Female

DRUGS (3)
  1. COVID?19 VACCINE [Concomitant]
     Indication: COVID-19 IMMUNISATION
     Dosage: PFIZER
     Route: 030
  2. HUMIRA [Suspect]
     Active Substance: ADALIMUMAB
     Indication: RHEUMATOID ARTHRITIS
     Route: 058
  3. HUMIRA [Suspect]
     Active Substance: ADALIMUMAB
     Route: 058

REACTIONS (8)
  - Cough [Unknown]
  - Cataract [Unknown]
  - Fatigue [Unknown]
  - Sinus operation [Recovered/Resolved]
  - Suspected COVID-19 [Recovered/Resolved]
  - Pyrexia [Unknown]
  - Arthralgia [Recovered/Resolved]
  - Parathyroid tumour [Recovered/Resolved]

NARRATIVE: CASE EVENT DATE: 202001
